FAERS Safety Report 17392948 (Version 1)
Quarter: 2020Q1

REPORT INFORMATION
  Report Type: Spontaneous
  Country: US (occurrence: US)
  Receive Date: 20200207
  Receipt Date: 20200207
  Transmission Date: 20200409
  Serious: Yes (Hospitalization)
  Sender: FDA-Public Use
  Company Number: US-SA-2020SA032752

PATIENT
  Sex: Male
  Weight: 110 kg

DRUGS (27)
  1. FLUOROURACIL. [Suspect]
     Active Substance: FLUOROURACIL
     Dosage: 5556 MG, QCY
     Route: 042
     Dates: start: 20190919, end: 20190919
  2. BISOPROLOL [Concomitant]
     Active Substance: BISOPROLOL
     Indication: ATRIAL FIBRILLATION
     Dosage: UNK
     Dates: start: 20190508
  3. ZYLORIC [Concomitant]
     Active Substance: ALLOPURINOL
     Indication: GOUT
     Dosage: UNK
  4. NEULASTA [Concomitant]
     Active Substance: PEGFILGRASTIM
     Indication: PROPHYLAXIS
     Dosage: UNK
     Dates: start: 20190802
  5. MAGNESIUM CITRATE. [Concomitant]
     Active Substance: MAGNESIUM CITRATE
     Indication: HYPOMAGNESAEMIA
     Dosage: UNK
     Dates: start: 20190508
  6. GLICLAZIDE [Concomitant]
     Active Substance: GLICLAZIDE
     Indication: DIABETES MELLITUS
  7. DAFALGAN [Concomitant]
     Active Substance: ACETAMINOPHEN
     Indication: ABDOMINAL PAIN
     Dosage: UNK
  8. NYSTATINE [Concomitant]
     Indication: PROPHYLAXIS
     Dosage: UNK
     Dates: start: 20190508
  9. FLUOROURACIL. [Suspect]
     Active Substance: FLUOROURACIL
     Dosage: 5556 MG, QCY
     Route: 042
     Dates: start: 20190508, end: 20190508
  10. PANTOPRAZOLE [Concomitant]
     Active Substance: PANTOPRAZOLE
     Indication: PROPHYLAXIS
     Dosage: UNK
  11. PERIO AID [CHLORHEXIDINE GLUCONATE] [Concomitant]
     Indication: PROPHYLAXIS
     Dosage: UNK
     Dates: start: 20190508
  12. ALOXI [Concomitant]
     Active Substance: PALONOSETRON HYDROCHLORIDE
     Indication: PROPHYLAXIS
     Dosage: UNK
     Dates: start: 20190508
  13. LASIX [Concomitant]
     Active Substance: FUROSEMIDE
     Indication: COUGH
     Dosage: UNK
     Dates: start: 20190703
  14. OXALIPLATIN. [Suspect]
     Active Substance: OXALIPLATIN
     Indication: PANCREATIC CARCINOMA METASTATIC
     Dosage: 197 MG, QCY
     Route: 042
     Dates: start: 20190508, end: 20190508
  15. FLUOROURACIL. [Suspect]
     Active Substance: FLUOROURACIL
     Indication: PANCREATIC CARCINOMA METASTATIC
     Dosage: 926 MG, QCY
     Route: 040
     Dates: start: 20190508, end: 20190508
  16. FLUOROURACIL. [Suspect]
     Active Substance: FLUOROURACIL
     Dosage: 926 MG, QCY
     Route: 040
     Dates: start: 20190919, end: 20190919
  17. METFORMAX [Concomitant]
     Active Substance: METFORMIN HYDROCHLORIDE
     Dosage: UNK
  18. UNI DIAMICRON [Concomitant]
     Active Substance: GLICLAZIDE
     Dosage: UNK
  19. SOLU-MEDROL [Concomitant]
     Active Substance: METHYLPREDNISOLONE SODIUM SUCCINATE
     Indication: PROPHYLAXIS
     Dosage: UNK
     Dates: start: 20190508
  20. LOPERAMIDE HYDROCHLORIDE. [Concomitant]
     Active Substance: LOPERAMIDE HYDROCHLORIDE
     Indication: DIARRHOEA
  21. OXALIPLATIN. [Suspect]
     Active Substance: OXALIPLATIN
     Dosage: 197 MG, QCY
     Route: 042
     Dates: start: 20190813, end: 20190813
  22. IMODIUM [Concomitant]
     Active Substance: LOPERAMIDE HYDROCHLORIDE
     Dosage: UNK
     Dates: start: 20190518
  23. FLAMMAZINE [Concomitant]
     Active Substance: SILVER SULFADIAZINE
     Indication: INTERTRIGO
     Dosage: UNK
     Dates: start: 20190527
  24. METFORMIN HYDROCHLORIDE. [Concomitant]
     Active Substance: METFORMIN HYDROCHLORIDE
     Indication: DIABETES MELLITUS
  25. DAKTARIN [MICONAZOLE] [Concomitant]
     Active Substance: MICONAZOLE
     Indication: COUGH
     Dosage: UNK
  26. FLUCONAZOLE. [Concomitant]
     Active Substance: FLUCONAZOLE
     Indication: INTERTRIGO
     Dosage: UNK
     Dates: start: 20190524
  27. FRAXIPARINE [Concomitant]
     Active Substance: NADROPARIN CALCIUM
     Indication: PULMONARY EMBOLISM
     Dosage: UNK

REACTIONS (1)
  - Generalised oedema [Not Recovered/Not Resolved]

NARRATIVE: CASE EVENT DATE: 20191001
